FAERS Safety Report 24156058 (Version 1)
Quarter: 2024Q3

REPORT INFORMATION
  Report Type: Other
  Country: ZA (occurrence: ZA)
  Receive Date: 20240731
  Receipt Date: 20240731
  Transmission Date: 20241017
  Serious: Yes (Life-Threatening)
  Sender: B BRAUN
  Company Number: ZA-B.Braun Medical Inc.-2159790

PATIENT
  Age: 71 Year
  Sex: Male

DRUGS (11)
  1. HEPARIN SODIUM IN DEXTROSE [Suspect]
     Active Substance: HEPARIN SODIUM
     Indication: Anticoagulant therapy
  2. TIROFIBAN [Suspect]
     Active Substance: TIROFIBAN
  3. Adrenaline infusions [Concomitant]
  4. DOBUTAMINE [Concomitant]
     Active Substance: DOBUTAMINE HYDROCHLORIDE
  5. TICAGRELOR [Concomitant]
     Active Substance: TICAGRELOR
  6. SIROLIMUS [Concomitant]
     Active Substance: SIROLIMUS
  7. EVEROLIMUS [Concomitant]
     Active Substance: EVEROLIMUS
  8. FUROSEMIDE [Concomitant]
     Active Substance: FUROSEMIDE
  9. ATORVASTATIN [Concomitant]
     Active Substance: ATORVASTATIN
  10. CLOPIDOGREL [Concomitant]
     Active Substance: CLOPIDOGREL BISULFATE
  11. ASPIRIN [Concomitant]
     Active Substance: ASPIRIN

REACTIONS (1)
  - Drug ineffective [Unknown]
